FAERS Safety Report 23799327 (Version 1)
Quarter: 2024Q2

REPORT INFORMATION
  Report Type: Spontaneous
  Country: US (occurrence: US)
  Receive Date: 20240430
  Receipt Date: 20240430
  Transmission Date: 20240716
  Serious: Yes (Other)
  Sender: FDA-Public Use
  Company Number: US-UCBSA-2024019979

PATIENT
  Sex: Male
  Weight: 74.8 kg

DRUGS (2)
  1. KEPPRA [Suspect]
     Active Substance: LEVETIRACETAM
     Indication: Seizure
     Dosage: 750MG BID
     Dates: end: 2022
  2. KEPPRA XR [Suspect]
     Active Substance: LEVETIRACETAM
     Indication: Seizure
     Dosage: 1500 MILLIGRAM, ONCE DAILY (QD) AT NIGHT

REACTIONS (3)
  - Seizure [Unknown]
  - Irritability [Unknown]
  - Drug ineffective [Unknown]
